FAERS Safety Report 7649578-5 (Version None)
Quarter: 2011Q3

REPORT INFORMATION
  Report Type: 
  Country: None (occurrence: None)
  Receive Date: 20110727
  Receipt Date: 20110714
  Transmission Date: 20111222
  Serious: Yes (Hospitalization, Other)
  Sender: FDA-Public Use
  Company Number: 2011P1007787

PATIENT
  Age: 65 Year
  Sex: Female

DRUGS (17)
  1. SIMVASTATIN [Concomitant]
  2. PERCOCET 9ACETAMINIPHEN AND OXYCODONE) [Concomitant]
  3. MYCOPHENOLATE MOFETIL [Concomitant]
  4. PREDNISONE [Suspect]
     Indication: GOUT
     Dosage: SEE IMAGE: PO
     Route: 048
     Dates: start: 20110707, end: 20110707
  5. PREDNISONE [Suspect]
     Indication: GOUT
     Dosage: SEE IMAGE: PO
     Route: 048
     Dates: start: 20110710, end: 20110710
  6. PREDNISONE [Suspect]
     Indication: GOUT
     Dosage: SEE IMAGE: PO
     Route: 048
     Dates: start: 20110711, end: 20110711
  7. PREDNISONE [Suspect]
     Indication: GOUT
     Dosage: SEE IMAGE: PO
     Route: 048
     Dates: start: 20110714, end: 20110714
  8. PREDNISONE [Suspect]
     Indication: GOUT
     Dosage: SEE IMAGE: PO
     Route: 048
     Dates: start: 20110708, end: 20110708
  9. PREDNISONE [Suspect]
     Indication: GOUT
     Dosage: SEE IMAGE: PO
     Route: 048
     Dates: start: 20110709, end: 20110709
  10. PREDNISONE [Suspect]
     Indication: GOUT
     Dosage: SEE IMAGE: PO
     Route: 048
     Dates: start: 20110712, end: 20110712
  11. NOVOLOG [Concomitant]
  12. RANITIDINE [Concomitant]
  13. BACTRIM SS (SULFAMETHOXAZOLE AND TRIMETHOPRIM) [Concomitant]
  14. VALCYTE [Concomitant]
  15. LANTUS SOLOSTAR (INSULIN GLARGIN [RDNA ORIGIN] INJECTION) [Concomitant]
  16. FLEXPEN [Concomitant]
  17. TACROLIMUS [Concomitant]

REACTIONS (3)
  - TRANSIENT ISCHAEMIC ATTACK [None]
  - DIABETES MELLITUS INADEQUATE CONTROL [None]
  - ANGER [None]
